FAERS Safety Report 10210908 (Version 1)
Quarter: 2014Q2

REPORT INFORMATION
  Report Type: Spontaneous
  Country: BR (occurrence: BR)
  Receive Date: 20140602
  Receipt Date: 20140602
  Transmission Date: 20141212
  Serious: Yes (Death, Other)
  Sender: FDA-Public Use
  Company Number: BR-PFIZER INC-2014147206

PATIENT
  Sex: Female
  Weight: 35 kg

DRUGS (1)
  1. LIPITOR [Suspect]
     Indication: BLOOD CHOLESTEROL ABNORMAL
     Dosage: 1X/DAY
     Route: 048
     Dates: start: 20071017, end: 20140507

REACTIONS (3)
  - Multi-organ failure [Fatal]
  - Diabetes mellitus [Unknown]
  - Haemorrhage [Unknown]
